FAERS Safety Report 13855496 (Version 1)
Quarter: 2017Q3

REPORT INFORMATION
  Report Type: Spontaneous
  Country: US (occurrence: US)
  Receive Date: 20170810
  Receipt Date: 20170810
  Transmission Date: 20171127
  Serious: No
  Sender: FDA-Public Use
  Company Number: US-ASTRAZENECA-2017SE80685

PATIENT
  Age: 37 Year
  Sex: Male

DRUGS (1)
  1. PRILOSEC OTC [Suspect]
     Active Substance: OMEPRAZOLE MAGNESIUM
     Dosage: 1 TABLET, 2 /DAY, 30 MINUTES AFTER FIRST TABLET
     Route: 048

REACTIONS (9)
  - Disorientation [Recovered/Resolved]
  - Asthenia [Recovered/Resolved]
  - Feeling abnormal [Recovered/Resolved]
  - Extra dose administered [Unknown]
  - Emotional distress [Recovered/Resolved]
  - Accidental overdose [Unknown]
  - Pharyngeal disorder [Recovered/Resolved]
  - Dizziness [Recovered/Resolved]
  - Hunger [Not Recovered/Not Resolved]

NARRATIVE: CASE EVENT DATE: 20170728
